FAERS Safety Report 9999315 (Version 4)
Quarter: 2015Q1

REPORT INFORMATION
  Report Type: Report from Study
  Country: ES (occurrence: ES)
  Receive Date: 20140312
  Receipt Date: 20150116
  Transmission Date: 20150721
  Serious: Yes (Life-Threatening, Hospitalization, Other)
  Sender: FDA-Public Use
  Company Number: ES-ASTRAZENECA-2014SE16912

PATIENT
  Age: 31177 Day
  Sex: Female

DRUGS (13)
  1. SIMVASTATINE [Concomitant]
     Active Substance: SIMVASTATIN
     Dates: end: 20140306
  2. FOLIC ACID. [Concomitant]
     Active Substance: FOLIC ACID
     Dates: end: 20140310
  3. OLMETEC PLUS [Concomitant]
     Active Substance: HYDROCHLOROTHIAZIDE\OLMESARTAN MEDOXOMIL
     Dates: end: 20140310
  4. OMEPRAZOLE. [Concomitant]
     Active Substance: OMEPRAZOLE
     Dates: end: 20140310
  5. ATORVASTATIN [Concomitant]
     Active Substance: ATORVASTATIN
     Dates: start: 20140306, end: 20140310
  6. AZD6140 [Suspect]
     Active Substance: TICAGRELOR
     Indication: ISCHAEMIC HEART DISEASE PROPHYLAXIS
     Route: 048
     Dates: start: 20140307
  7. METHOTREXATE [Concomitant]
     Active Substance: METHOTREXATE
     Dates: end: 20140310
  8. AZD6140 [Suspect]
     Active Substance: TICAGRELOR
     Indication: ISCHAEMIC HEART DISEASE PROPHYLAXIS
     Route: 048
     Dates: start: 20140306, end: 20140306
  9. CHOLECALCIFEROL [Concomitant]
     Active Substance: CHOLECALCIFEROL
     Dates: end: 20140310
  10. IBANDRONIC ACID [Concomitant]
     Active Substance: IBANDRONIC ACID
     Dates: end: 20140310
  11. TRIFLUSAL [Concomitant]
     Active Substance: TRIFLUSAL
     Dates: end: 20140306
  12. CALCIUM CARBONATE. [Concomitant]
     Active Substance: CALCIUM CARBONATE
     Dates: end: 20140310
  13. PARACETAMOL [Concomitant]
     Active Substance: ACETAMINOPHEN
     Dates: end: 20140310

REACTIONS (1)
  - Respiratory tract infection [Recovered/Resolved]

NARRATIVE: CASE EVENT DATE: 20140308
